FAERS Safety Report 16156179 (Version 3)
Quarter: 2019Q2

REPORT INFORMATION
  Report Type: Report from Study
  Country: JP (occurrence: JP)
  Receive Date: 20190404
  Receipt Date: 20190425
  Transmission Date: 20190711
  Serious: Yes (Other)
  Sender: FDA-Public Use
  Company Number: JP-AMGEN-JPNCT2019053208

PATIENT
  Age: 73 Year
  Sex: Female
  Weight: 55.6 kg

DRUGS (42)
  1. CALCIUM LEVOFOLINATE [Concomitant]
     Active Substance: LEVOLEUCOVORIN CALCIUM
     Dosage: UNK
     Route: 041
     Dates: start: 20180112, end: 20180323
  2. 5-FU [FLUOROURACIL] [Concomitant]
     Active Substance: FLUOROURACIL
     Dosage: 600 MILLIGRAM, Q2WK
     Route: 040
     Dates: start: 20170526, end: 20170915
  3. 5-FU [FLUOROURACIL] [Concomitant]
     Active Substance: FLUOROURACIL
     Dosage: 3650 MILLIGRAM, Q2WK
     Route: 041
     Dates: start: 20171012, end: 20171012
  4. 5-FU [FLUOROURACIL] [Concomitant]
     Active Substance: FLUOROURACIL
     Dosage: UNK
     Route: 041
     Dates: start: 20181214
  5. PANITUMUMAB [Suspect]
     Active Substance: PANITUMUMAB
     Dosage: 330 MILLIGRAM, Q2WK
     Route: 041
     Dates: start: 20170526, end: 20170915
  6. CALCIUM LEVOFOLINATE [Concomitant]
     Active Substance: LEVOLEUCOVORIN CALCIUM
     Dosage: 300 MILLIGRAM, Q2WK
     Route: 041
     Dates: start: 20171012, end: 20171012
  7. 5-FU [FLUOROURACIL] [Concomitant]
     Active Substance: FLUOROURACIL
     Dosage: UNK
     Route: 041
     Dates: start: 20180420
  8. TELMISARTAN. [Concomitant]
     Active Substance: TELMISARTAN
     Indication: HYPERTENSION
     Dosage: 20 MILLIGRAM, BID
     Route: 048
  9. OXALIPLATIN. [Concomitant]
     Active Substance: OXALIPLATIN
     Dosage: 130 MILLIGRAM, Q2WK
     Route: 041
     Dates: start: 20170526, end: 20170915
  10. OXALIPLATIN. [Concomitant]
     Active Substance: OXALIPLATIN
     Dosage: 130 MILLIGRAM, Q2WK
     Route: 041
     Dates: start: 20171012, end: 20171012
  11. CALCIUM LEVOFOLINATE [Concomitant]
     Active Substance: LEVOLEUCOVORIN CALCIUM
     Indication: COLON CANCER STAGE IV
     Dosage: 300 MILLIGRAM, Q2WK
     Route: 041
     Dates: start: 20161125, end: 20170224
  12. CALCIUM LEVOFOLINATE [Concomitant]
     Active Substance: LEVOLEUCOVORIN CALCIUM
     Dosage: 300 MILLIGRAM, Q2WK
     Route: 041
     Dates: start: 20171110, end: 20171110
  13. CALCIUM LEVOFOLINATE [Concomitant]
     Active Substance: LEVOLEUCOVORIN CALCIUM
     Dosage: UNK
     Route: 041
     Dates: start: 20180420
  14. 5-FU [FLUOROURACIL] [Concomitant]
     Active Substance: FLUOROURACIL
     Dosage: 600 MILLIGRAM, Q2WK
     Route: 040
     Dates: start: 20170324, end: 20170421
  15. 5-FU [FLUOROURACIL] [Concomitant]
     Active Substance: FLUOROURACIL
     Dosage: 3650 MILLIGRAM, Q2WK
     Route: 041
     Dates: start: 20170526, end: 20170915
  16. 5-FU [FLUOROURACIL] [Concomitant]
     Active Substance: FLUOROURACIL
     Dosage: 600 MILLIGRAM, Q2WK
     Route: 040
     Dates: start: 20171215, end: 20171215
  17. 5-FU [FLUOROURACIL] [Concomitant]
     Active Substance: FLUOROURACIL
     Dosage: UNK
     Route: 040
     Dates: start: 20180420
  18. 5-FU [FLUOROURACIL] [Concomitant]
     Active Substance: FLUOROURACIL
     Dosage: UNK
     Route: 040
     Dates: start: 20181214
  19. CARVEDILOL. [Concomitant]
     Active Substance: CARVEDILOL
     Indication: HYPERTENSION
     Dosage: 5 MILLIGRAM, QD
     Route: 048
  20. PANITUMUMAB [Suspect]
     Active Substance: PANITUMUMAB
     Indication: COLON CANCER STAGE IV
     Dosage: 330 MILLIGRAM, Q2WK
     Route: 041
     Dates: start: 20161125, end: 20170224
  21. PANITUMUMAB [Suspect]
     Active Substance: PANITUMUMAB
     Dosage: 4.8 MILLIGRAM/KILOGRAM, Q2WK
     Route: 041
     Dates: start: 20171012, end: 20171012
  22. PANITUMUMAB [Suspect]
     Active Substance: PANITUMUMAB
     Dosage: 3.6 MILLIGRAM/KILOGRAM, Q2WK
     Route: 041
     Dates: start: 20171215, end: 20171215
  23. OXALIPLATIN. [Concomitant]
     Active Substance: OXALIPLATIN
     Indication: COLON CANCER STAGE IV
     Dosage: 130 MILLIGRAM, Q2WK
     Route: 041
     Dates: start: 20161125, end: 20170224
  24. OXALIPLATIN. [Concomitant]
     Active Substance: OXALIPLATIN
     Dosage: 130 MILLIGRAM, Q2WK
     Route: 041
     Dates: start: 20171215, end: 20171215
  25. 5-FU [FLUOROURACIL] [Concomitant]
     Active Substance: FLUOROURACIL
     Indication: COLON CANCER STAGE IV
     Dosage: 600 MILLIGRAM, Q2WK
     Route: 040
     Dates: start: 20161125, end: 20170224
  26. 5-FU [FLUOROURACIL] [Concomitant]
     Active Substance: FLUOROURACIL
     Dosage: 3650 MILLIGRAM, Q2WK
     Route: 041
     Dates: start: 20171215, end: 20171215
  27. 5-FU [FLUOROURACIL] [Concomitant]
     Active Substance: FLUOROURACIL
     Dosage: UNK
     Route: 040
     Dates: start: 20180112, end: 20180323
  28. OXALIPLATIN. [Concomitant]
     Active Substance: OXALIPLATIN
     Dosage: 130 MILLIGRAM, Q2WK
     Route: 041
     Dates: start: 20170324, end: 20170421
  29. OXALIPLATIN. [Concomitant]
     Active Substance: OXALIPLATIN
     Dosage: 130 MILLIGRAM, Q2WK
     Route: 041
     Dates: start: 20171110, end: 20171110
  30. 5-FU [FLUOROURACIL] [Concomitant]
     Active Substance: FLUOROURACIL
     Dosage: 3650 MILLIGRAM, Q2WK
     Route: 041
     Dates: start: 20161125, end: 20170224
  31. 5-FU [FLUOROURACIL] [Concomitant]
     Active Substance: FLUOROURACIL
     Dosage: 600 MILLIGRAM, Q2WK
     Route: 040
     Dates: start: 20171110, end: 20171110
  32. 5-FU [FLUOROURACIL] [Concomitant]
     Active Substance: FLUOROURACIL
     Dosage: UNK
     Route: 040
     Dates: start: 20190205
  33. 5-FU [FLUOROURACIL] [Concomitant]
     Active Substance: FLUOROURACIL
     Dosage: UNK
     Route: 041
     Dates: start: 20190205
  34. CALCIUM LEVOFOLINATE [Concomitant]
     Active Substance: LEVOLEUCOVORIN CALCIUM
     Dosage: 300 MILLIGRAM, Q2WK
     Route: 041
     Dates: start: 20170324, end: 20170421
  35. CALCIUM LEVOFOLINATE [Concomitant]
     Active Substance: LEVOLEUCOVORIN CALCIUM
     Dosage: 300 MILLIGRAM, Q2WK
     Route: 041
     Dates: start: 20171215, end: 20171215
  36. NIFEDIPINE. [Concomitant]
     Active Substance: NIFEDIPINE
     Indication: HYPERTENSION
     Dosage: 10 MILLIGRAM, BID
     Route: 048
  37. CALCIUM LEVOFOLINATE [Concomitant]
     Active Substance: LEVOLEUCOVORIN CALCIUM
     Dosage: 300 MILLIGRAM, Q2WK
     Route: 041
     Dates: start: 20170526, end: 20170915
  38. 5-FU [FLUOROURACIL] [Concomitant]
     Active Substance: FLUOROURACIL
     Dosage: 3650 MILLIGRAM, Q2WK
     Route: 041
     Dates: start: 20170324, end: 20170421
  39. 5-FU [FLUOROURACIL] [Concomitant]
     Active Substance: FLUOROURACIL
     Dosage: 600 MILLIGRAM, Q2WK
     Route: 040
     Dates: start: 20171012, end: 20171012
  40. 5-FU [FLUOROURACIL] [Concomitant]
     Active Substance: FLUOROURACIL
     Dosage: 3650 MILLIGRAM, Q2WK
     Route: 041
     Dates: start: 20171110, end: 20171110
  41. 5-FU [FLUOROURACIL] [Concomitant]
     Active Substance: FLUOROURACIL
     Dosage: UNK
     Route: 041
     Dates: start: 20180112, end: 20180323
  42. PANITUMUMAB [Suspect]
     Active Substance: PANITUMUMAB
     Dosage: 330 MILLIGRAM, Q2WK
     Route: 041
     Dates: start: 20170324, end: 20170421

REACTIONS (5)
  - Stomatitis [Recovered/Resolved]
  - Malaise [Recovered/Resolved]
  - Catheter site ulcer [Recovered/Resolved]
  - Paronychia [Recovered/Resolved]
  - Neutrophil count decreased [Recovered/Resolved]

NARRATIVE: CASE EVENT DATE: 20170915
